FAERS Safety Report 8275336-7 (Version None)
Quarter: 2012Q2

REPORT INFORMATION
  Report Type: 
  Country: None (occurrence: None)
  Receive Date: 20120411
  Receipt Date: 20120409
  Transmission Date: 20120825
  Serious: Yes (Death)
  Sender: FDA-Public Use
  Company Number: PHEH2012US007141

PATIENT
  Sex: Male

DRUGS (3)
  1. FOLIC ACID [Concomitant]
     Indication: SICKLE CELL ANAEMIA
  2. HYDROXYUREA [Concomitant]
     Indication: SICKLE CELL ANAEMIA
  3. EXJADE [Suspect]
     Indication: IRON OVERLOAD
     Route: 048

REACTIONS (1)
  - DEATH [None]
